FAERS Safety Report 5778724-3 (Version None)
Quarter: 2008Q2

REPORT INFORMATION
  Report Type: 
  Country: None (occurrence: None)
  Receive Date: 20080618
  Receipt Date: 20080618
  Transmission Date: 20081010
  Serious: No
  Sender: FDA-Public Use
  Company Number: None

PATIENT
  Age: 55 Year
  Sex: Female
  Weight: 74.8435 kg

DRUGS (1)
  1. BYETTA [Suspect]
     Indication: OBESITY
     Dosage: 5 MG BID SQ 2 DOSES
     Route: 058
     Dates: start: 20070921, end: 20070922

REACTIONS (5)
  - BALANCE DISORDER [None]
  - DIZZINESS [None]
  - MALAISE [None]
  - NAUSEA [None]
  - VOMITING [None]
